FAERS Safety Report 25035754 (Version 1)
Quarter: 2025Q1

REPORT INFORMATION
  Report Type: Spontaneous
  Country: US (occurrence: None)
  Receive Date: 20250303
  Receipt Date: 20250303
  Transmission Date: 20250409
  Serious: No
  Sender: FDA-CTU
  Company Number: None

PATIENT
  Age: 54 Year
  Sex: Male
  Weight: 0.0 kg

DRUGS (6)
  1. ADBRY [Suspect]
     Active Substance: TRALOKINUMAB-LDRM
     Indication: Dermatitis atopic
     Dosage: FREQUENCY : EVERY OTHER WEEK;?
     Route: 058
  2. Betamethasone Valerate External Oin [Concomitant]
  3. Gabapentin Oral Tablet 600 MG [Concomitant]
  4. Losartan Potassium Oral Tablet 25 M [Concomitant]
  5. Triamcinolone Acetonide External Cr [Concomitant]
  6. Zoloft Oral Tablet 50 MG [Concomitant]

REACTIONS (1)
  - Therapy interrupted [None]
